FAERS Safety Report 6644653-6 (Version None)
Quarter: 2010Q1

REPORT INFORMATION
  Report Type: 
  Country: None (occurrence: None)
  Receive Date: 20100322
  Receipt Date: 20100310
  Transmission Date: 20100710
  Serious: Yes (Hospitalization)
  Sender: FDA-Public Use
  Company Number: JP-MERCK-1003USA02012

PATIENT
  Age: 82 Year
  Sex: Female

DRUGS (3)
  1. HYZAAR [Suspect]
     Route: 048
  2. SHAKUYAKU-KANZO-TO [Suspect]
     Route: 048
  3. AMLODIPINE [Concomitant]
     Route: 048

REACTIONS (1)
  - PSEUDOALDOSTERONISM [None]
